FAERS Safety Report 5603107-6 (Version None)
Quarter: 2008Q1

REPORT INFORMATION
  Report Type: 
  Country: None (occurrence: None)
  Receive Date: 20080125
  Receipt Date: 20080123
  Transmission Date: 20080703
  Serious: Yes (Other)
  Sender: FDA-Public Use
  Company Number: GB-BRISTOL-MYERS SQUIBB COMPANY-14052096

PATIENT
  Age: 78 Year
  Sex: Male

DRUGS (4)
  1. IRBESARTAN [Suspect]
  2. ASPIRIN [Concomitant]
  3. AMLODIPINE [Concomitant]
  4. CASODEX [Concomitant]
     Indication: PROSTATE CANCER

REACTIONS (2)
  - SYSTEMIC LUPUS ERYTHEMATOSUS [None]
  - VASCULITIS [None]
